FAERS Safety Report 6457134-X (Version None)
Quarter: 2009Q4

REPORT INFORMATION
  Report Type: 
  Country: None (occurrence: None)
  Receive Date: 20091125
  Receipt Date: 20091116
  Transmission Date: 20100525
  Serious: Yes (Other)
  Sender: FDA-Public Use
  Company Number: B0606458A

PATIENT
  Age: 83 Year
  Sex: Male

DRUGS (1)
  1. AVIDART [Suspect]
     Indication: BENIGN PROSTATIC HYPERPLASIA
     Route: 048
     Dates: start: 20060101

REACTIONS (1)
  - PULMONARY HYPERTENSION [None]
